FAERS Safety Report 16445496 (Version 2)
Quarter: 2019Q2

REPORT INFORMATION
  Report Type: Spontaneous
  Country: US (occurrence: US)
  Receive Date: 20190618
  Receipt Date: 20190619
  Transmission Date: 20190711
  Serious: Yes (Hospitalization, Other)
  Sender: FDA-Public Use
  Company Number: US-PFIZER INC-2018496432

PATIENT
  Age: 77 Year
  Sex: Female
  Weight: 54.43 kg

DRUGS (6)
  1. VFEND [Suspect]
     Active Substance: VORICONAZOLE
     Indication: ASPERGILLUS INFECTION
     Dosage: 200 MG, 2X/DAY (200MG EVERY 12 HOURS BY MOUTH)
     Route: 048
     Dates: start: 201805, end: 20181124
  2. VFEND [Suspect]
     Active Substance: VORICONAZOLE
     Dosage: 200 MG, 2X/DAY (200MG EVERY 12 HOURS BY MOUTH)
     Route: 048
     Dates: start: 2018
  3. METOPROLOL. [Concomitant]
     Active Substance: METOPROLOL
     Indication: ATRIAL FIBRILLATION
     Dosage: UNK
  4. VFEND [Suspect]
     Active Substance: VORICONAZOLE
     Indication: BRAIN ABSCESS
     Dosage: 100 MG, 2X/DAY (100 MG, 2 TABS Q12HR))
     Route: 048
  5. VFEND [Suspect]
     Active Substance: VORICONAZOLE
     Dosage: 200 MG (TAKE 1 TABLET EVERY 12 FOR 30 DAYS)
  6. WARFARIN [Concomitant]
     Active Substance: WARFARIN
     Dosage: UNK

REACTIONS (3)
  - Dysstasia [Unknown]
  - Pneumonia [Recovering/Resolving]
  - Insomnia [Unknown]

NARRATIVE: CASE EVENT DATE: 201905
